FAERS Safety Report 4350746-9 (Version None)
Quarter: 2004Q2

REPORT INFORMATION
  Report Type: 
  Country: None (occurrence: None)
  Receive Date: 20040427
  Receipt Date: 20040414
  Transmission Date: 20050107
  Serious: Yes (Other)
  Sender: FDA-Public Use
  Company Number: US-JNJFOC-20040403217

PATIENT
  Age: 62 Year
  Sex: Male

DRUGS (6)
  1. DURAGESIC [Suspect]
     Indication: PAIN
     Dosage: 75 UG/HR, 1 IN 72 HOUR, TRANSDERMAL
     Route: 062
     Dates: start: 20040330, end: 20040413
  2. HYDROCODONE (HYDROCODONE) [Concomitant]
  3. NORVASC [Concomitant]
  4. VIOXX [Concomitant]
  5. PAROXETINE HCL [Concomitant]
  6. PACERONE [Concomitant]

REACTIONS (7)
  - ASTHENIA [None]
  - BALANCE DISORDER [None]
  - DISORIENTATION [None]
  - FALL [None]
  - HALLUCINATION [None]
  - HAND FRACTURE [None]
  - LIMB INJURY [None]
